FAERS Safety Report 10264679 (Version 1)
Quarter: 2014Q2

REPORT INFORMATION
  Report Type: Spontaneous
  Country: US (occurrence: US)
  Receive Date: 20140627
  Receipt Date: 20140627
  Transmission Date: 20141212
  Serious: No
  Sender: FDA-Public Use
  Company Number: US-GLAXOSMITHKLINE-A1067066A

PATIENT
  Age: 76 Year
  Sex: Male

DRUGS (8)
  1. TAFINLAR [Suspect]
     Indication: METASTATIC MALIGNANT MELANOMA
     Dosage: 300 PER DAY
     Route: 048
     Dates: start: 20140127
  2. MEKINIST [Suspect]
     Indication: METASTATIC MALIGNANT MELANOMA
     Dosage: 2MG PER DAY
     Route: 048
     Dates: start: 20140127
  3. METOPROLOL [Concomitant]
  4. PROBENECID [Concomitant]
  5. LORAZEPAM [Concomitant]
  6. AMLODIPINE [Concomitant]
  7. BABY ASPIRIN [Concomitant]
  8. MULTI VITAMIN [Concomitant]

REACTIONS (1)
  - Dyspepsia [Recovered/Resolved]
